FAERS Safety Report 15676926 (Version 1)
Quarter: 2018Q4

REPORT INFORMATION
  Report Type: Spontaneous
  Country: US (occurrence: US)
  Receive Date: 20181130
  Receipt Date: 20181130
  Transmission Date: 20190205
  Serious: No
  Sender: FDA-Public Use
  Company Number: US-PFIZER INC-2018485442

PATIENT
  Age: 67 Year
  Sex: Female
  Weight: 78.2 kg

DRUGS (1)
  1. ADVIL PM [Suspect]
     Active Substance: DIPHENHYDRAMINE CITRATE\IBUPROFEN
     Dosage: 2 DF, 1X/DAY (2 LIQUID-GELS ONCE A DAY IN THE EVENING )
     Route: 048
     Dates: start: 20181024

REACTIONS (3)
  - Viral infection [Unknown]
  - Cough [Unknown]
  - Malaise [Not Recovered/Not Resolved]

NARRATIVE: CASE EVENT DATE: 201811
